FAERS Safety Report 7603398 (Version 2)
Quarter: 2014Q2

REPORT INFORMATION
  Report Type: Report from Study
  Country: US (occurrence: US)
  Receive Date: 20100923
  Receipt Date: 20140506
  Transmission Date: 20141212
  Serious: Yes (Death, Other)
  Sender: FDA-Public Use
  Company Number: US-PFIZER INC-2010116255

PATIENT
  Sex: Male

DRUGS (1)
  1. LYRICA [Suspect]
     Dosage: UNK

REACTIONS (3)
  - Death [Fatal]
  - Dyspnoea [Unknown]
  - Rhabdomyolysis [Unknown]
